FAERS Safety Report 12852170 (Version 1)
Quarter: 2016Q4

REPORT INFORMATION
  Report Type: Spontaneous
  Country: IT (occurrence: IT)
  Receive Date: 20161017
  Receipt Date: 20161017
  Transmission Date: 20170207
  Serious: Yes (Hospitalization)
  Sender: FDA-Public Use
  Company Number: IT-GLAXOSMITHKLINE-IT2016GSK149300

PATIENT
  Age: 72 Year
  Sex: Female

DRUGS (4)
  1. LORTAAN [Suspect]
     Active Substance: LOSARTAN POTASSIUM
     Indication: HYPERTENSION
     Dosage: 50 MG, QD
     Route: 048
     Dates: start: 20160101, end: 20160906
  2. TEGRETOL [Suspect]
     Active Substance: CARBAMAZEPINE
     Indication: EPILEPSY
     Dosage: 400 MG, BID
     Route: 048
     Dates: start: 20160101, end: 20160906
  3. XANAX [Concomitant]
     Active Substance: ALPRAZOLAM
     Dosage: 0.25 MG, UNK
     Route: 048
  4. LAMICTAL [Suspect]
     Active Substance: LAMOTRIGINE
     Indication: EPILEPSY
     Dosage: 250 MG, QD
     Route: 048
     Dates: start: 20160101, end: 20160906

REACTIONS (3)
  - Hyponatraemia [Unknown]
  - Vertigo [Unknown]
  - Balance disorder [Unknown]

NARRATIVE: CASE EVENT DATE: 20160906
